FAERS Safety Report 13880435 (Version 1)
Quarter: 2017Q3

REPORT INFORMATION
  Report Type: Spontaneous
  Country: US (occurrence: US)
  Receive Date: 20170818
  Receipt Date: 20170818
  Transmission Date: 20171127
  Serious: Yes (Other)
  Sender: FDA-Public Use
  Company Number: US-MYLANLABS-2017M1050535

PATIENT

DRUGS (4)
  1. DEXAMETHASONE. [Suspect]
     Active Substance: DEXAMETHASONE
     Indication: PLASMA CELL MYELOMA
     Dosage: THREE CYCLES
     Route: 065
     Dates: start: 201406
  2. CARFILZOMIB [Suspect]
     Active Substance: CARFILZOMIB
     Indication: PLASMA CELL MYELOMA
     Dosage: THREE CYCLES
     Route: 065
     Dates: start: 201406
  3. ASPIRIN                            /00002701/ [Concomitant]
     Active Substance: ASPIRIN
     Indication: PROPHYLAXIS
     Route: 065
  4. POMALIDOMIDE [Suspect]
     Active Substance: POMALIDOMIDE
     Indication: PLASMA CELL MYELOMA
     Dosage: THREE CYCLES OF 4MG
     Route: 065
     Dates: start: 201406

REACTIONS (5)
  - Anaemia [Unknown]
  - Malaise [Unknown]
  - Fatigue [Unknown]
  - Neutropenia [Unknown]
  - Thrombocytopenia [Unknown]
